FAERS Safety Report 20769159 (Version 1)
Quarter: 2022Q2

REPORT INFORMATION
  Report Type: Spontaneous
  Country: US (occurrence: None)
  Receive Date: 20220428
  Receipt Date: 20220428
  Transmission Date: 20220721
  Serious: Yes (Other)
  Sender: FDA-Public Use
  Company Number: None

PATIENT
  Age: 70 Year
  Sex: Male
  Weight: 92.25 kg

DRUGS (2)
  1. LUPRON [Suspect]
     Active Substance: LEUPROLIDE ACETATE
     Indication: Prostatomegaly
     Dosage: INJECTION IN PERIINIUM
  2. Catheters [Concomitant]

REACTIONS (2)
  - Crying [None]
  - Emotional disorder [None]

NARRATIVE: CASE EVENT DATE: 20220201
